FAERS Safety Report 25068895 (Version 1)
Quarter: 2025Q1

REPORT INFORMATION
  Report Type: Spontaneous
  Country: US (occurrence: US)
  Receive Date: 20250312
  Receipt Date: 20250312
  Transmission Date: 20250409
  Serious: No
  Sender: SANOFI AVENTIS
  Company Number: US-SA-2025SA069908

PATIENT
  Age: 72 Year
  Sex: Female
  Weight: 68.18 kg

DRUGS (10)
  1. KEVZARA [Suspect]
     Active Substance: SARILUMAB
     Indication: Psoriatic arthropathy
     Dosage: 400 MG, QOW
     Route: 058
     Dates: start: 20240214
  2. VITAMIN D3 [Concomitant]
     Active Substance: CHOLECALCIFEROL
  3. METHIMAZOLE [Concomitant]
     Active Substance: METHIMAZOLE
  4. FLUOXETINE HYDROCHLORIDE [Concomitant]
     Active Substance: FLUOXETINE HYDROCHLORIDE
  5. ALENDRONATE SODIUM [Concomitant]
     Active Substance: ALENDRONATE SODIUM
  6. BUPROPION [Concomitant]
     Active Substance: BUPROPION
     Dosage: 24H
  7. CALTRATE WITH VITAMIN D [Concomitant]
     Active Substance: CALCIUM CARBONATE\CHOLECALCIFEROL
  8. VITAMIN B12 [Concomitant]
     Active Substance: CYANOCOBALAMIN
  9. CEPHALEXIN [Concomitant]
     Active Substance: CEPHALEXIN
  10. MYRBETRIQ [Concomitant]
     Active Substance: MIRABEGRON

REACTIONS (2)
  - Constipation [Not Recovered/Not Resolved]
  - Product use in unapproved indication [Unknown]

NARRATIVE: CASE EVENT DATE: 20240214
